FAERS Safety Report 23758802 (Version 1)
Quarter: 2024Q2

REPORT INFORMATION
  Report Type: Spontaneous
  Country: US (occurrence: US)
  Receive Date: 20240418
  Receipt Date: 20240418
  Transmission Date: 20240716
  Serious: No
  Sender: FDA-Public Use
  Company Number: US-SPC-000420

PATIENT
  Age: 72 Year
  Sex: Female

DRUGS (1)
  1. METRONIDAZOLE [Suspect]
     Active Substance: METRONIDAZOLE
     Indication: Bacterial infection
     Dosage: APPLIED ONCE
     Route: 065

REACTIONS (3)
  - Musculoskeletal chest pain [Unknown]
  - Abdominal pain upper [Unknown]
  - Abdominal pain lower [Unknown]
